FAERS Safety Report 7888431-9 (Version None)
Quarter: 2011Q4

REPORT INFORMATION
  Report Type: 
  Country: None (occurrence: None)
  Receive Date: 20111103
  Receipt Date: 20111025
  Transmission Date: 20120403
  Serious: Yes (Hospitalization, Other)
  Sender: FDA-Public Use
  Company Number: PHEH2011US04478

PATIENT
  Sex: Female
  Weight: 44.898 kg

DRUGS (1)
  1. EXJADE [Suspect]
     Indication: HAEMATOPOIETIC NEOPLASM
     Dosage: 1000 MG, DAILY
     Route: 048
     Dates: start: 20100412

REACTIONS (5)
  - FUNGAL INFECTION [None]
  - HIP FRACTURE [None]
  - BACTERAEMIA [None]
  - SEPSIS [None]
  - FALL [None]
